FAERS Safety Report 24365215 (Version 1)
Quarter: 2024Q3

REPORT INFORMATION
  Report Type: Spontaneous
  Country: IT (occurrence: IT)
  Receive Date: 20240926
  Receipt Date: 20240926
  Transmission Date: 20241016
  Serious: Yes (Other)
  Sender: CELLTRION
  Company Number: IT-AMGEN-ITASP2024059518

PATIENT

DRUGS (1)
  1. ADALIMUMAB [Suspect]
     Active Substance: ADALIMUMAB
     Indication: Juvenile idiopathic arthritis
     Dosage: 20 MILLIGRAM, Q2WK; (ADDITIONAL INFORMATION ON DRUG (FREE TEXT): DOSAGE1: UNIT=NOT AVAILABLE)
     Route: 065

REACTIONS (1)
  - Juvenile idiopathic arthritis [Unknown]
